FAERS Safety Report 6268309-7 (Version None)
Quarter: 2009Q3

REPORT INFORMATION
  Report Type: 
  Country: None (occurrence: None)
  Receive Date: 20090714
  Receipt Date: 20090714
  Transmission Date: 20100115
  Serious: Yes (Other)
  Sender: FDA-Public Use
  Company Number: None

PATIENT
  Age: 72 Year
  Sex: Male
  Weight: 72.1219 kg

DRUGS (2)
  1. CARTIA XT [Suspect]
     Indication: ATRIAL FIBRILLATION
     Dosage: 1 CAPSULE ONCE DAILY PO
     Route: 048
     Dates: start: 20090513, end: 20090613
  2. DILTIAZEM [Suspect]
     Indication: ATRIAL FIBRILLATION
     Dosage: 1 CAPSULE ONCE DAILY PO
     Route: 048
     Dates: start: 20090613, end: 20090713

REACTIONS (6)
  - DIARRHOEA [None]
  - ECONOMIC PROBLEM [None]
  - FATIGUE [None]
  - HEART RATE DECREASED [None]
  - HEART RATE IRREGULAR [None]
  - PRODUCT SUBSTITUTION ISSUE [None]
